FAERS Safety Report 26026142 (Version 1)
Quarter: 2025Q4

REPORT INFORMATION
  Report Type: Spontaneous
  Country: EU (occurrence: EU)
  Receive Date: 20251111
  Receipt Date: 20251111
  Transmission Date: 20260117
  Serious: Yes (Other)
  Sender: JOHNSON AND JOHNSON
  Company Number: EU-JNJFOC-20251141764

PATIENT
  Age: 41 Year
  Sex: Male

DRUGS (4)
  1. DARZALEX [Suspect]
     Active Substance: DARATUMUMAB
     Indication: Plasma cell myeloma
     Dosage: SIX INDUCTION CYCLES
     Route: 065
     Dates: start: 202308, end: 202401
  2. VELCADE [Suspect]
     Active Substance: BORTEZOMIB
     Indication: Plasma cell myeloma
     Dosage: SIX INDUCTION CYCLES
     Route: 065
     Dates: start: 202308, end: 202401
  3. THALIDOMIDE [Suspect]
     Active Substance: THALIDOMIDE
     Indication: Plasma cell myeloma
     Dosage: SIX INDUCTION CYCLES
     Route: 065
     Dates: start: 202308, end: 202401
  4. DEXAMETHASONE [Suspect]
     Active Substance: DEXAMETHASONE
     Indication: Plasma cell myeloma
     Dosage: SIX INDUCTION CYCLES
     Route: 065
     Dates: start: 202308, end: 202401

REACTIONS (3)
  - Peripheral sensory neuropathy [Unknown]
  - Atrial fibrillation [Unknown]
  - Deep vein thrombosis [Unknown]
